FAERS Safety Report 8574734-1 (Version None)
Quarter: 2012Q3

REPORT INFORMATION
  Report Type: 
  Country: None (occurrence: None)
  Receive Date: 20120807
  Receipt Date: 20120730
  Transmission Date: 20120928
  Serious: No
  Sender: FDA-Public Use
  Company Number: US-BIOGENIDEC-2011BI037784

PATIENT
  Age: 23 Year
  Sex: Female

DRUGS (1)
  1. AVONEX [Suspect]
     Indication: MULTIPLE SCLEROSIS
     Route: 030
     Dates: start: 20110811

REACTIONS (9)
  - DIZZINESS [None]
  - INFLUENZA LIKE ILLNESS [None]
  - DIPLOPIA [None]
  - FATIGUE [None]
  - THROAT TIGHTNESS [None]
  - DYSPNOEA [None]
  - PALPITATIONS [None]
  - HEPATIC ENZYME INCREASED [None]
  - ANXIETY [None]
